FAERS Safety Report 6139946-5 (Version None)
Quarter: 2009Q2

REPORT INFORMATION
  Report Type: 
  Country: None (occurrence: None)
  Receive Date: 20090401
  Receipt Date: 20090325
  Transmission Date: 20091009
  Serious: Yes (Hospitalization)
  Sender: FDA-Public Use
  Company Number: US-ELI_LILLY_AND_COMPANY-US200903006672

PATIENT
  Age: 48 Year
  Sex: Male

DRUGS (5)
  1. BYETTA [Suspect]
     Indication: TYPE 2 DIABETES MELLITUS
     Dates: start: 20070101, end: 20090101
  2. METFORMIN HCL [Concomitant]
     Indication: TYPE 2 DIABETES MELLITUS
  3. LANTUS [Concomitant]
     Indication: TYPE 2 DIABETES MELLITUS
  4. AMARYL [Concomitant]
     Indication: TYPE 2 DIABETES MELLITUS
  5. LISINOPRIL [Concomitant]
     Indication: BLOOD PRESSURE

REACTIONS (3)
  - BLOOD TRIGLYCERIDES INCREASED [None]
  - PANCREATITIS [None]
  - WEIGHT DECREASED [None]
